FAERS Safety Report 14717989 (Version 3)
Quarter: 2018Q3

REPORT INFORMATION
  Report Type: Spontaneous
  Country: US (occurrence: US)
  Receive Date: 20180404
  Receipt Date: 20180808
  Transmission Date: 20181010
  Serious: No
  Sender: FDA-Public Use
  Company Number: US-SA-2018SA060100

PATIENT
  Age: 43 Year
  Sex: Male

DRUGS (2)
  1. DUPIXENT [Suspect]
     Active Substance: DUPILUMAB
     Indication: DERMATITIS ATOPIC
     Dosage: 150 DF,QOW
     Route: 058
     Dates: start: 20170907
  2. PROVENTIL HFA [SALBUTAMOL SULFATE] [Concomitant]
     Dosage: UNK

REACTIONS (2)
  - Drug dose omission [Unknown]
  - Dermatitis atopic [Unknown]
